FAERS Safety Report 13156991 (Version 3)
Quarter: 2017Q1

REPORT INFORMATION
  Report Type: Spontaneous
  Country: DE (occurrence: DE)
  Receive Date: 20170127
  Receipt Date: 20170207
  Transmission Date: 20170428
  Serious: Yes (Hospitalization)
  Sender: FDA-Public Use
  Company Number: DE-UCBSA-2017002813

PATIENT
  Age: 4 Year
  Sex: Female
  Weight: 16 kg

DRUGS (6)
  1. LAMICTAL [Suspect]
     Active Substance: LAMOTRIGINE
     Indication: PRODUCT USED FOR UNKNOWN INDICATION
     Dosage: UNK
     Route: 048
  2. VIMPAT [Suspect]
     Active Substance: LACOSAMIDE
     Indication: PRODUCT USED FOR UNKNOWN INDICATION
     Dosage: UNK
     Route: 048
  3. OXCARBAZEPINE. [Suspect]
     Active Substance: OXCARBAZEPINE
     Indication: PRODUCT USED FOR UNKNOWN INDICATION
     Dosage: UNK
     Route: 048
  4. LAMICTAL [Suspect]
     Active Substance: LAMOTRIGINE
     Dosage: 75 MG, TOTAL (3 TABLETS OF 25 MG)
     Route: 048
     Dates: start: 20170120, end: 20170120
  5. OXCARBAZEPINE. [Suspect]
     Active Substance: OXCARBAZEPINE
     Dosage: 600 MG, TOTAL (300 MG 2 TABLETS)
     Route: 048
     Dates: start: 20170120, end: 20170120
  6. VIMPAT [Suspect]
     Active Substance: LACOSAMIDE
     Dosage: 150 MG, TOTAL, 3 TABLETS OF 50 MG
     Route: 048
     Dates: start: 20170120, end: 20170120

REACTIONS (3)
  - Accidental exposure to product [Unknown]
  - Vomiting [Recovered/Resolved]
  - Off label use [Unknown]

NARRATIVE: CASE EVENT DATE: 20170120
